FAERS Safety Report 22044371 (Version 5)
Quarter: 2023Q2

REPORT INFORMATION
  Report Type: Spontaneous
  Country: JP (occurrence: JP)
  Receive Date: 20230228
  Receipt Date: 20230412
  Transmission Date: 20230722
  Serious: Yes (Hospitalization, Other)
  Sender: FDA-Public Use
  Company Number: JP-MSD-M2023-07327

PATIENT
  Age: 52 Year
  Sex: Female

DRUGS (5)
  1. KEYTRUDA [Suspect]
     Active Substance: PEMBROLIZUMAB
     Indication: Triple negative breast cancer
     Dosage: 200 MILLIGRAM, Q3W
     Route: 041
     Dates: start: 20221011, end: 20230214
  2. PACLITAXEL [Concomitant]
     Active Substance: PACLITAXEL
     Indication: Triple negative breast cancer
     Dosage: 80 MILLIGRAM/SQ. METER, QW (ON DAY 1, 8, AND 15 OF A 21-DAY CYCLE)
     Route: 042
     Dates: start: 20221011, end: 20221220
  3. CARBOPLATIN [Concomitant]
     Active Substance: CARBOPLATIN
     Indication: Triple negative breast cancer
     Dosage: AUC1.5, QW (ON DAY 1, 8, AND 15 OF A 21-DAY CYCLE)
     Route: 042
     Dates: start: 20221011, end: 20221220
  4. DOXORUBICIN HYDROCHLORIDE [Concomitant]
     Active Substance: DOXORUBICIN HYDROCHLORIDE
     Indication: Triple negative breast cancer
     Dosage: 60 MILLIGRAM/SQ. METER, Q3W
     Route: 042
     Dates: start: 20230117, end: 20230214
  5. CYCLOPHOSPHAMIDE [Concomitant]
     Active Substance: CYCLOPHOSPHAMIDE
     Indication: Triple negative breast cancer
     Dosage: 600 MILLIGRAM/SQ. METER, Q3W
     Route: 042
     Dates: start: 20230117, end: 20230214

REACTIONS (9)
  - Pelvic inflammatory disease [Unknown]
  - Large intestine perforation [Recovered/Resolved]
  - Erythema multiforme [Recovered/Resolved]
  - Phlebitis [Unknown]
  - Brain natriuretic peptide increased [Recovered/Resolved]
  - C-reactive protein increased [Recovering/Resolving]
  - Infection [Unknown]
  - Pyrexia [Unknown]
  - Contrast media allergy [Recovered/Resolved]

NARRATIVE: CASE EVENT DATE: 20230101
